FAERS Safety Report 23849434 (Version 8)
Quarter: 2024Q3

REPORT INFORMATION
  Report Type: Report from Study
  Country: US (occurrence: US)
  Receive Date: 20240513
  Receipt Date: 20240905
  Transmission Date: 20241016
  Serious: Yes (Other)
  Sender: GLAXOSMITHKLINE
  Company Number: US-GLAXOSMITHKLINE-US2024AMR057499

PATIENT

DRUGS (2)
  1. NIRAPARIB [Suspect]
     Active Substance: NIRAPARIB
     Indication: Ovarian cancer
     Dosage: 1 DF, QD
     Route: 048
     Dates: start: 20240421
  2. NIRAPARIB [Suspect]
     Active Substance: NIRAPARIB
     Dosage: 100 MG, QD
     Route: 048

REACTIONS (15)
  - Pneumonia [Recovered/Resolved]
  - Pulmonary oedema [Recovering/Resolving]
  - Sluggishness [Not Recovered/Not Resolved]
  - Fatigue [Recovering/Resolving]
  - Influenza like illness [Not Recovered/Not Resolved]
  - Cough [Recovered/Resolved]
  - Pyrexia [Recovered/Resolved]
  - Dehydration [Unknown]
  - Hot flush [Not Recovered/Not Resolved]
  - Dysphonia [Recovered/Resolved]
  - Somnolence [Recovering/Resolving]
  - Dust allergy [Not Recovered/Not Resolved]
  - Condition aggravated [Unknown]
  - Nausea [Recovering/Resolving]
  - Incorrect dose administered [Unknown]

NARRATIVE: CASE EVENT DATE: 20240421
